FAERS Safety Report 6918856-7 (Version None)
Quarter: 2010Q3

REPORT INFORMATION
  Report Type: 
  Country: None (occurrence: None)
  Receive Date: 20100811
  Receipt Date: 20100407
  Transmission Date: 20110219
  Serious: No
  Sender: FDA-Public Use
  Company Number: US-TYCO HEALTHCARE/MALLINCKRODT-T201000678

PATIENT
  Sex: Male
  Weight: 65.76 kg

DRUGS (6)
  1. ACETAMINOPHEN AND HYDROCODONE BITARTRATE [Suspect]
     Dosage: TID
     Route: 048
     Dates: start: 20100107, end: 20100118
  2. HYDROCODONE BITARTRATE AND ACETAMINOPHEN [Concomitant]
     Dosage: UNK
  3. ASPIRIN [Concomitant]
     Indication: PROPHYLAXIS
     Dosage: 1 QD
     Route: 048
  4. STESS TAB [Concomitant]
     Indication: SUPPLEMENTATION THERAPY
     Dosage: 1 TAB QD
  5. FISH OIL [Concomitant]
     Dosage: 4 TABS QD
  6. SOMA [Concomitant]
     Indication: MUSCLE RELAXANT THERAPY
     Dosage: 1 TID

REACTIONS (2)
  - DYSURIA [None]
  - URINE FLOW DECREASED [None]
